FAERS Safety Report 13601043 (Version 1)
Quarter: 2017Q2

REPORT INFORMATION
  Report Type: Spontaneous
  Country: RU (occurrence: RU)
  Receive Date: 20170601
  Receipt Date: 20170601
  Transmission Date: 20170830
  Serious: Yes (Other)
  Sender: FDA-Public Use
  Company Number: RU-ASTRAZENECA-2017SE56560

PATIENT
  Age: 56 Year
  Sex: Female
  Weight: 110 kg

DRUGS (7)
  1. EGILOK [Concomitant]
     Active Substance: METOPROLOL TARTRATE
  2. VEROSPIRON [Concomitant]
     Active Substance: SPIRONOLACTONE
  3. ATORVASTATIN [Concomitant]
     Active Substance: ATORVASTATIN
  4. BRILINTA [Suspect]
     Active Substance: TICAGRELOR
     Indication: MYOCARDIAL INFARCTION
     Route: 048
     Dates: start: 20170410
  5. TRIGRIM [Concomitant]
  6. ENAP [Concomitant]
     Active Substance: ENALAPRIL
  7. CARDIOMAGNYL [Concomitant]
     Active Substance: ASPIRIN\MAGNESIUM HYDROXIDE

REACTIONS (3)
  - Abdominal pain [Recovered/Resolved]
  - Dyspnoea [Not Recovered/Not Resolved]
  - Contusion [Recovered/Resolved]

NARRATIVE: CASE EVENT DATE: 201705
